FAERS Safety Report 7728604-9 (Version None)
Quarter: 2011Q3

REPORT INFORMATION
  Report Type: 
  Country: None (occurrence: None)
  Receive Date: 20110831
  Receipt Date: 20110831
  Transmission Date: 20111222
  Serious: Yes (Hospitalization)
  Sender: FDA-Public Use
  Company Number: None

PATIENT
  Age: 66 Year
  Sex: Female

DRUGS (13)
  1. CLONAZEPAM [Concomitant]
  2. FUROSEMIDE [Concomitant]
  3. HYDROCODONE BITARTRATE AND ACETAMINOPHEN [Concomitant]
  4. ROPINIROLE [Concomitant]
  5. REVLIMID [Suspect]
     Indication: MYELODYSPLASTIC SYNDROME
     Dosage: REVLIMID 10 MG EVERY OTHER DAY ORALLY
     Route: 048
     Dates: start: 20101201
  6. FAMOTIDINE [Concomitant]
  7. CARVEDILOL [Concomitant]
  8. DULOXETIME HYDROCHLORIDE [Concomitant]
  9. FLUTICASONE PROPIONATE [Concomitant]
  10. LISINOPRIL [Concomitant]
  11. NORTRIPTYLINE HCL [Concomitant]
  12. GABAPENTIN [Concomitant]
  13. RALOXIFENE HCL [Concomitant]

REACTIONS (7)
  - EXTRASYSTOLES [None]
  - ATRIOVENTRICULAR BLOCK SECOND DEGREE [None]
  - BLOOD PRESSURE DECREASED [None]
  - DIZZINESS [None]
  - ATRIOVENTRICULAR BLOCK FIRST DEGREE [None]
  - VENTRICULAR EXTRASYSTOLES [None]
  - HYPERHIDROSIS [None]
